FAERS Safety Report 14345887 (Version 1)
Quarter: 2017Q4

REPORT INFORMATION
  Report Type: Spontaneous
  Country: US (occurrence: US)
  Receive Date: 20171231
  Receipt Date: 20171231
  Transmission Date: 20180321
  Serious: Yes (Life-Threatening, Hospitalization)
  Sender: FDA-Public Use
  Company Number: None

PATIENT
  Age: 72 Year
  Sex: Male
  Weight: 96.16 kg

DRUGS (1)
  1. HEPARIN [Suspect]
     Active Substance: HEPARIN SODIUM
     Indication: HEPARIN-INDUCED THROMBOCYTOPENIA
     Dosage: 1100 UNITS PER HOUR IV
     Route: 042
     Dates: start: 20171206, end: 20171211

REACTIONS (4)
  - Peripheral embolism [None]
  - Pulmonary embolism [None]
  - Heparin-induced thrombocytopenia [None]
  - Gastric haemorrhage [None]

NARRATIVE: CASE EVENT DATE: 20171208
